FAERS Safety Report 5197429-3 (Version None)
Quarter: 2006Q4

REPORT INFORMATION
  Report Type: 
  Country: None (occurrence: None)
  Receive Date: 20060927
  Receipt Date: 20060428
  Transmission Date: 20070319
  Serious: No
  Sender: FDA-Public Use
  Company Number: US-CVT-060908

PATIENT
  Age: 70 Year
  Sex: Female

DRUGS (6)
  1. RANEXA (RANOLAZAINE) ER TABLET, 500MG [Suspect]
     Indication: ANGINA PECTORIS
     Dosage: 500 MG, BID, ORAL
     Route: 048
     Dates: start: 20060401, end: 20060401
  2. LASIX [Suspect]
  3. IMDUR [Concomitant]
  4. TOPROL-XL [Concomitant]
  5. ANTIBIOTICS () [Suspect]
     Indication: STAPHYLOCOCCAL INFECTION
  6. CALCIUM CHANNEL BLOCKERS [Concomitant]

REACTIONS (1)
  - RASH [None]
